FAERS Safety Report 6780399-1 (Version None)
Quarter: 2010Q2

REPORT INFORMATION
  Report Type: 
  Country: None (occurrence: None)
  Receive Date: 20100619
  Receipt Date: 20100609
  Transmission Date: 20101027
  Serious: Yes (Hospitalization, Other)
  Sender: FDA-Public Use
  Company Number: US-ALLERGAN-1007694US

PATIENT
  Age: 43 Year
  Sex: Male

DRUGS (6)
  1. GATIFLOXACIN SESQUIHYDRATE UNK [Suspect]
     Indication: EYE INFECTION
     Dosage: 1 GTT, Q2HR
     Route: 047
  2. NATAMYCIN [Concomitant]
     Indication: EYE INFECTION
     Dosage: UNK
  3. FLUCONAZOLE [Concomitant]
     Dosage: 100 MG, BID
     Route: 048
  4. VORICONAZOLE [Concomitant]
     Dosage: UNK
     Route: 047
  5. VORICONAZOLE [Concomitant]
     Dosage: 200 MG, BID
     Route: 048
  6. ACUVUE [Concomitant]
     Dosage: UNK

REACTIONS (6)
  - CORNEAL DISORDER [None]
  - CORNEAL INFILTRATES [None]
  - CORNEAL OEDEMA [None]
  - DRUG INEFFECTIVE [None]
  - EYE INFECTION [None]
  - HYPOPYON [None]
